FAERS Safety Report 8540774 (Version 2)
Quarter: 2012Q4

REPORT INFORMATION
  Report Type: 
  Country: US (occurrence: US)
  Receive Date: 20120502
  Receipt Date: 20120830
  Transmission Date: 20130627
  Serious: Yes (Hospitalization)
  Sender: FDA-Public Use
  Company Number: US-BAYER-2012-041911

PATIENT
  Age: 35 Year
  Sex: Female
  Weight: 61.22 kg

DRUGS (4)
  1. YAZ [Suspect]
     Indication: CONTRACEPTION
     Dosage: UNK
     Dates: start: 20071108, end: 200803
  2. YAZ [Suspect]
     Indication: PREMENSTRUAL SYNDROME
     Dosage: UNK
     Dates: start: 20080618, end: 200908
  3. YAZ [Suspect]
     Indication: PREMENSTRUAL SYNDROME
     Dosage: UNK
     Dates: start: 20091005, end: 201001
  4. ZOLOFT [Concomitant]
     Dosage: UNK
     Dates: start: 2009

REACTIONS (9)
  - Cholelithiasis [None]
  - Cholecystitis chronic [None]
  - Bile duct stone [None]
  - Injury [None]
  - Pain [None]
  - Biliary dilatation [None]
  - Abdominal pain upper [None]
  - Nausea [None]
  - Vomiting [None]
